FAERS Safety Report 24227674 (Version 2)
Quarter: 2024Q3

REPORT INFORMATION
  Report Type: Spontaneous
  Country: HU (occurrence: HU)
  Receive Date: 20240820
  Receipt Date: 20240905
  Transmission Date: 20241017
  Serious: Yes (Life-Threatening, Hospitalization, Other)
  Sender: MYLAN
  Company Number: None

PATIENT
  Age: 38 Year
  Sex: Female

DRUGS (4)
  1. DOCETAXEL [Suspect]
     Active Substance: DOCETAXEL\DOCETAXEL ANHYDROUS
     Indication: Invasive ductal breast carcinoma
     Dosage: UNK UNK, QCY, 10 CYCLES
     Route: 065
     Dates: start: 20120522, end: 20130219
  2. EPIRUBICIN [Suspect]
     Active Substance: EPIRUBICIN
     Indication: Invasive ductal breast carcinoma
     Dosage: UNK UNK, QCY, 10 CYCLES
     Route: 065
     Dates: start: 20120522, end: 20130219
  3. DOXIFLURIDINE [Suspect]
     Active Substance: DOXIFLURIDINE
     Indication: Invasive ductal breast carcinoma
     Dosage: UNK
     Route: 065
     Dates: start: 20120522, end: 20130219
  4. ZOLEDRONIC ACID [Concomitant]
     Active Substance: ZOLEDRONIC ACID
     Indication: Invasive ductal breast carcinoma
     Dosage: UNK
     Route: 042
     Dates: start: 2012

REACTIONS (2)
  - Agranulocytosis [Recovered/Resolved]
  - Pyrexia [Recovered/Resolved]
